FAERS Safety Report 8902785 (Version 1)
Quarter: 2012Q4

REPORT INFORMATION
  Report Type: 
  Country: CA (occurrence: CA)
  Receive Date: 20121112
  Receipt Date: 20121112
  Transmission Date: 20130627
  Serious: Yes (Other)
  Sender: FDA-Public Use
  Company Number: CA-BRISTOL-MYERS SQUIBB COMPANY-17104738

PATIENT

DRUGS (1)
  1. ABILIFY [Suspect]
     Dosage: titrated to 2-5 mg-10mg

REACTIONS (3)
  - Serotonin syndrome [Recovering/Resolving]
  - Masked facies [Unknown]
  - Anxiety [Unknown]
